FAERS Safety Report 5865775-3 (Version None)
Quarter: 2008Q3

REPORT INFORMATION
  Report Type: 
  Country: None (occurrence: None)
  Receive Date: 20080829
  Receipt Date: 20080822
  Transmission Date: 20090109
  Serious: Yes (Other)
  Sender: FDA-Public Use
  Company Number: PHHY2008JP19054

PATIENT

DRUGS (3)
  1. DIOVAN [Suspect]
     Route: 048
  2. AMLODIPINE BESYLATE [Concomitant]
  3. LANSOPRAZOLE [Concomitant]

REACTIONS (1)
  - HYPOGLYCAEMIA [None]
